FAERS Safety Report 4890951-6 (Version None)
Quarter: 2006Q1

REPORT INFORMATION
  Report Type: 
  Country: None (occurrence: None)
  Receive Date: 20060125
  Receipt Date: 20060107
  Transmission Date: 20060701
  Serious: Yes (Death, Life-Threatening, Hospitalization)
  Sender: FDA-Public Use
  Company Number: FR-AVENTIS-200610086FR

PATIENT
  Age: 52 Year
  Sex: Female
  Weight: 50 kg

DRUGS (8)
  1. TAXOTERE [Suspect]
     Indication: BREAST CANCER METASTATIC
     Route: 042
     Dates: start: 20051223, end: 20051223
  2. SOLU-MEDROL [Suspect]
     Indication: MUCOSAL INFLAMMATION
     Route: 042
     Dates: start: 20051201, end: 20051205
  3. HERCEPTINE [Concomitant]
     Indication: BREAST CANCER
     Route: 042
     Dates: start: 20051222, end: 20051222
  4. HERCEPTINE [Concomitant]
     Route: 042
     Dates: start: 20051229, end: 20051229
  5. ALDACTONE [Concomitant]
     Indication: ASCITES
     Route: 048
     Dates: start: 20051129, end: 20060102
  6. IMOVANE [Concomitant]
     Indication: SLEEP DISORDER
     Route: 048
     Dates: start: 20051129
  7. CIPROFLOXACIN [Concomitant]
     Indication: MUCOSAL INFLAMMATION
     Route: 042
     Dates: start: 20050201
  8. OMEPRAZOLE [Concomitant]
     Indication: ABDOMINAL PAIN UPPER
     Route: 042
     Dates: start: 20050601

REACTIONS (3)
  - ASCITES [None]
  - GASTRIC PERFORATION [None]
  - PNEUMOPERITONEUM [None]
